FAERS Safety Report 4616473-5 (Version None)
Quarter: 2005Q1

REPORT INFORMATION
  Report Type: 
  Country: None (occurrence: None)
  Receive Date: 20050318
  Receipt Date: 20050307
  Transmission Date: 20050727
  Serious: Yes (Hospitalization, Other)
  Sender: FDA-Public Use
  Company Number: 2005017123

PATIENT
  Age: 65 Year
  Sex: Male

DRUGS (2)
  1. BEXTRA [Suspect]
     Indication: OSTEOARTHRITIS
     Dosage: 20 MG (20 MG, 1 IN 1 D), ORAL
     Route: 048
     Dates: start: 20041005, end: 20041128
  2. DOXAZOSIN MESYLATE [Concomitant]

REACTIONS (6)
  - ADVERSE EVENT [None]
  - ASTHENIA [None]
  - BODY TEMPERATURE INCREASED [None]
  - PAIN [None]
  - RASH GENERALISED [None]
  - RASH MACULO-PAPULAR [None]
